FAERS Safety Report 8254067-3 (Version None)
Quarter: 2012Q2

REPORT INFORMATION
  Report Type: 
  Country: None (occurrence: None)
  Receive Date: 20120402
  Receipt Date: 20120320
  Transmission Date: 20120825
  Serious: No
  Sender: FDA-Public Use
  Company Number: US-AMGEN-USASP2012017942

PATIENT
  Age: 66 Year
  Sex: Female

DRUGS (1)
  1. ENBREL [Suspect]
     Indication: RHEUMATOID ARTHRITIS
     Dosage: 50 MG, QWK
     Dates: start: 20120227

REACTIONS (6)
  - ERYTHEMA [None]
  - RASH PRURITIC [None]
  - PAIN IN EXTREMITY [None]
  - FEELING HOT [None]
  - MUSCULOSKELETAL STIFFNESS [None]
  - RASH ERYTHEMATOUS [None]
